FAERS Safety Report 4390195-0 (Version None)
Quarter: 2004Q3

REPORT INFORMATION
  Report Type: 
  Country: None (occurrence: None)
  Receive Date: 20040706
  Receipt Date: 20040621
  Transmission Date: 20050211
  Serious: Yes (Death)
  Sender: FDA-Public Use
  Company Number: AU-GLAXOSMITHKLINE-B0337290A

PATIENT
  Age: 25 Year
  Sex: Male

DRUGS (1)
  1. PAROXETINE HCL [Suspect]
     Indication: DEPRESSION
     Route: 048
     Dates: start: 19960101, end: 19980304

REACTIONS (3)
  - ABNORMAL BEHAVIOUR [None]
  - COMPLETED SUICIDE [None]
  - SUICIDE ATTEMPT [None]
